FAERS Safety Report 4619328-5 (Version None)
Quarter: 2005Q1

REPORT INFORMATION
  Report Type: 
  Country: None (occurrence: None)
  Receive Date: 20050318
  Receipt Date: 20050318
  Transmission Date: 20050727
  Serious: Yes (Hospitalization)
  Sender: FDA-Public Use
  Company Number: None

PATIENT
  Sex: Female
  Weight: 73.9363 kg

DRUGS (4)
  1. COUMADIN [Suspect]
     Indication: MYOCARDIAL INFARCTION
     Dosage: PO [PRIOR TO ADMISSION]
     Route: 048
  2. LIPITOR [Concomitant]
  3. LASIX [Concomitant]
  4. ALTACE [Concomitant]

REACTIONS (4)
  - ABDOMINAL PAIN [None]
  - HAEMATOMA [None]
  - HAEMORRHAGE [None]
  - INTRA-ABDOMINAL HAEMORRHAGE [None]
